FAERS Safety Report 18055156 (Version 1)
Quarter: 2020Q3

REPORT INFORMATION
  Report Type: Spontaneous
  Country: US (occurrence: US)
  Receive Date: 20200722
  Receipt Date: 20200722
  Transmission Date: 20201103
  Serious: No
  Sender: FDA-Public Use
  Company Number: US-ACCORD-152970

PATIENT
  Age: 63 Year
  Sex: Female
  Weight: 106.59 kg

DRUGS (1)
  1. AMITRIPTYLINE ACCORD [Suspect]
     Active Substance: AMITRIPTYLINE
     Indication: PRODUCT USED FOR UNKNOWN INDICATION
     Dosage: STRENGTH: 50 MG

REACTIONS (3)
  - Pruritus [Recovering/Resolving]
  - Allergic reaction to excipient [Recovering/Resolving]
  - Rash papular [Recovering/Resolving]
